FAERS Safety Report 22274914 (Version 1)
Quarter: 2023Q2

REPORT INFORMATION
  Report Type: Spontaneous
  Country: US (occurrence: UM)
  Receive Date: 20230502
  Receipt Date: 20230502
  Transmission Date: 20230721
  Serious: No
  Sender: FDA-Public Use
  Company Number: US-RVL_Pharmaceuticals-USA-POI1255202300072

PATIENT
  Age: 42 Year
  Sex: Female

DRUGS (1)
  1. UPNEEQ [Suspect]
     Active Substance: OXYMETAZOLINE HYDROCHLORIDE
     Indication: Product used for unknown indication
     Dosage: 1 GTT OS, 2 GTT OD
     Route: 047
     Dates: start: 20230311, end: 20230311

REACTIONS (9)
  - Eye irritation [Unknown]
  - Eye pain [Unknown]
  - Eyelid margin crusting [Unknown]
  - Photophobia [Unknown]
  - Vision blurred [Unknown]
  - Eye disorder [Unknown]
  - Dry eye [Unknown]
  - Madarosis [Unknown]
  - Incorrect dose administered [Unknown]

NARRATIVE: CASE EVENT DATE: 20230301
